FAERS Safety Report 4993949-2 (Version None)
Quarter: 2006Q2

REPORT INFORMATION
  Report Type: 
  Country: None (occurrence: None)
  Receive Date: 20060505
  Receipt Date: 20060503
  Transmission Date: 20061013
  Serious: Yes (Other)
  Sender: FDA-Public Use
  Company Number: US-GLAXOSMITHKLINE-A0604240A

PATIENT
  Age: 52 Year
  Sex: Female

DRUGS (6)
  1. LAMICTAL [Suspect]
     Indication: BIPOLAR DISORDER
     Dosage: 200MG TWICE PER DAY
     Route: 048
  2. RESTORIL [Concomitant]
  3. CLONAZEPAM [Concomitant]
  4. TYLENOL W/ CODEINE NO. 3 [Concomitant]
  5. ESTROGENS SOL/INJ [Concomitant]
  6. PROMETRIUM [Concomitant]

REACTIONS (10)
  - CONFUSIONAL STATE [None]
  - DISORIENTATION [None]
  - HEADACHE [None]
  - INTENTIONAL OVERDOSE [None]
  - LETHARGY [None]
  - NYSTAGMUS [None]
  - RESTLESSNESS [None]
  - SLUGGISHNESS [None]
  - SUICIDE ATTEMPT [None]
  - VISION BLURRED [None]
